FAERS Safety Report 20975701 (Version 2)
Quarter: 2022Q2

REPORT INFORMATION
  Report Type: Spontaneous
  Country: US (occurrence: US)
  Receive Date: 20220617
  Receipt Date: 20220622
  Transmission Date: 20220721
  Serious: No
  Sender: FDA-Public Use
  Company Number: US-PFIZER INC-202200845648

PATIENT
  Age: 69 Year
  Sex: Female
  Weight: 83.91 kg

DRUGS (1)
  1. ONDANSETRON [Suspect]
     Active Substance: ONDANSETRON
     Indication: Nausea
     Dosage: EVERY 8 HOURS, PUT ABOVE TONGUE

REACTIONS (2)
  - Drug ineffective [Unknown]
  - Off label use [Unknown]
